FAERS Safety Report 7004262-6 (Version None)
Quarter: 2010Q3

REPORT INFORMATION
  Report Type: 
  Country: None (occurrence: None)
  Receive Date: 20100921
  Receipt Date: 20100916
  Transmission Date: 20110219
  Serious: Yes (Death, Other)
  Sender: FDA-Public Use
  Company Number: US-ASTRAZENECA-2009UW00772

PATIENT
  Age: 22234 Day
  Sex: Female

DRUGS (21)
  1. SEROQUEL [Suspect]
     Indication: BIPOLAR DISORDER
     Dosage: 200-300 MG
     Route: 048
     Dates: start: 20031018
  2. SEROQUEL [Suspect]
     Indication: ANXIETY
     Dosage: 200-300 MG
     Route: 048
     Dates: start: 20031018
  3. SEROQUEL [Suspect]
     Indication: DEPRESSION
     Dosage: 200-300 MG
     Route: 048
     Dates: start: 20031018
  4. SEROQUEL [Suspect]
     Route: 048
     Dates: start: 20060101, end: 20061001
  5. SEROQUEL [Suspect]
     Route: 048
     Dates: start: 20060101, end: 20061001
  6. SEROQUEL [Suspect]
     Route: 048
     Dates: start: 20060101, end: 20061001
  7. SEPTRA DS [Concomitant]
     Indication: URINARY TRACT INFECTION
     Dosage: BID
     Dates: start: 20031001
  8. HYDROCHLOROTHIAZIDE [Concomitant]
     Dates: start: 20031001
  9. LORAZEPAM [Concomitant]
     Indication: ANXIETY
     Dosage: 1 MG PRN
     Dates: start: 20031001
  10. NEXIUM [Concomitant]
     Dates: start: 20031001
  11. LIPITOR [Concomitant]
     Dates: start: 20031001
  12. MENEST [Concomitant]
     Dates: start: 20031001
  13. LOTREL [Concomitant]
     Dosage: 2.5/10
     Dates: start: 20031001
  14. MORPHINE SULFATE [Concomitant]
     Indication: BACK PAIN
     Dates: start: 20031001
  15. EFFEXOR [Concomitant]
     Dates: start: 20031001
  16. PROZAC [Concomitant]
     Dates: start: 20031001
  17. AZMACORT [Concomitant]
     Dates: start: 20040508
  18. ZEBETA [Concomitant]
     Dates: start: 20040508
  19. XANAX [Concomitant]
     Indication: PANIC ATTACK
     Dosage: PRN
  20. KLONOPIN [Concomitant]
     Dates: start: 20050816
  21. LISINOPRIL [Concomitant]
     Dates: start: 20050816

REACTIONS (4)
  - ARTERIOSCLEROSIS CORONARY ARTERY [None]
  - CORONARY ARTERY DISEASE [None]
  - MYOCARDIAL INFARCTION [None]
  - TYPE 2 DIABETES MELLITUS [None]
